FAERS Safety Report 4915083-X (Version None)
Quarter: 2006Q1

REPORT INFORMATION
  Report Type: 
  Country: None (occurrence: None)
  Receive Date: 20060217
  Receipt Date: 20060206
  Transmission Date: 20060701
  Serious: Yes (Other)
  Sender: FDA-Public Use
  Company Number: PHFR2006GB00776

PATIENT
  Sex: Female

DRUGS (2)
  1. NORETHINDRONE ACETATE AND ETHINYL ESTRADIOL [Suspect]
     Indication: HORMONE REPLACEMENT THERAPY
     Route: 062
  2. TETRACYCLINE [Suspect]
     Indication: LOWER RESPIRATORY TRACT INFECTION
     Route: 065

REACTIONS (4)
  - DRUG INTERACTION [None]
  - FEELING COLD [None]
  - LOSS OF CONSCIOUSNESS [None]
  - MEMORY IMPAIRMENT [None]
